FAERS Safety Report 4747844-4 (Version None)
Quarter: 2005Q3

REPORT INFORMATION
  Report Type: 
  Country: None (occurrence: None)
  Receive Date: 20050818
  Receipt Date: 20041103
  Transmission Date: 20060218
  Serious: No
  Sender: FDA-Public Use
  Company Number: US-BRISTOL-MYERS SQUIBB COMPANY-12754891

PATIENT
  Age: 80 Year
  Sex: Male
  Weight: 90 kg

DRUGS (6)
  1. MEGACE [Suspect]
     Indication: HOT FLUSH
     Route: 048
  2. LUPRON DEPOT-3 [Suspect]
     Indication: PROSTATE CANCER
     Route: 030
     Dates: start: 20040606
  3. AMIODARONE [Concomitant]
     Route: 048
     Dates: start: 20030101
  4. NADOLOL [Concomitant]
     Route: 048
     Dates: start: 20030101
  5. HYTRIN [Concomitant]
     Route: 048
     Dates: start: 20030101
  6. SYNTHROID [Concomitant]
     Route: 048
     Dates: start: 20040101

REACTIONS (2)
  - DIZZINESS [None]
  - HOT FLUSH [None]
